FAERS Safety Report 7641471-7 (Version None)
Quarter: 2011Q3

REPORT INFORMATION
  Report Type: 
  Country: None (occurrence: None)
  Receive Date: 20110728
  Receipt Date: 20110725
  Transmission Date: 20111222
  Serious: Yes (Hospitalization)
  Sender: FDA-Public Use
  Company Number: US-ABBOTT-11P-163-0841341-00

PATIENT
  Sex: Female
  Weight: 51.756 kg

DRUGS (4)
  1. TYLENOL PM [Concomitant]
     Indication: PRODUCT USED FOR UNKNOWN INDICATION
  2. HUMIRA [Suspect]
     Indication: CROHN'S DISEASE
     Dates: start: 20080101
  3. TYLENOL-500 [Concomitant]
     Indication: PAIN
  4. PRENATAL VITAMINS [Concomitant]
     Indication: PREGNANCY

REACTIONS (5)
  - VAGINAL LACERATION [None]
  - PROTEIN URINE PRESENT [None]
  - PRE-ECLAMPSIA [None]
  - HYPERTENSION [None]
  - SWELLING [None]
